FAERS Safety Report 17684589 (Version 1)
Quarter: 2020Q2

REPORT INFORMATION
  Report Type: Spontaneous
  Country: US (occurrence: US)
  Receive Date: 20200417
  Receipt Date: 20200417
  Transmission Date: 20200714
  Serious: No
  Sender: FDA-Public Use
  Company Number: None

PATIENT
  Age: 70 Year
  Sex: Male
  Weight: 90 kg

DRUGS (1)
  1. RIVAROXABAN (RIVAROXABAN 20MG TAB) [Suspect]
     Active Substance: RIVAROXABAN
     Dosage: ?          OTHER DOSE:20;?
     Dates: start: 20150415, end: 20190318

REACTIONS (3)
  - Haemoglobin decreased [None]
  - Haematochezia [None]
  - Gastric haemorrhage [None]

NARRATIVE: CASE EVENT DATE: 20190317
